FAERS Safety Report 13164390 (Version 5)
Quarter: 2017Q2

REPORT INFORMATION
  Report Type: Report from Study
  Country: US (occurrence: US)
  Receive Date: 20170130
  Receipt Date: 20170504
  Transmission Date: 20170830
  Serious: Yes (Hospitalization, Other)
  Sender: FDA-Public Use
  Company Number: PHEH2017US002684

PATIENT
  Age: 75 Year
  Sex: Female

DRUGS (1)
  1. GLEEVEC [Suspect]
     Active Substance: IMATINIB MESYLATE
     Indication: ACUTE MYELOID LEUKAEMIA
     Dosage: 600 MG, UNK
     Route: 048
     Dates: start: 20161215

REACTIONS (19)
  - Platelet count decreased [Unknown]
  - Motor dysfunction [Unknown]
  - Hepatic steatosis [Unknown]
  - White blood cell count decreased [Unknown]
  - Pulmonary oedema [Unknown]
  - Abdominal hernia [Unknown]
  - Dizziness [Unknown]
  - Pleural effusion [Unknown]
  - Gallbladder disorder [Unknown]
  - Asthenia [Unknown]
  - Hepatitis [Unknown]
  - Visual impairment [Unknown]
  - Flatulence [Unknown]
  - Cholelithiasis [Unknown]
  - Aphasia [Unknown]
  - Cardiac failure congestive [Unknown]
  - Sensory loss [Unknown]
  - Haemoglobin decreased [Unknown]
  - Gallbladder enlargement [Unknown]

NARRATIVE: CASE EVENT DATE: 20161218
